FAERS Safety Report 5508962-6 (Version None)
Quarter: 2007Q4

REPORT INFORMATION
  Report Type: 
  Country: None (occurrence: None)
  Receive Date: 20071107
  Receipt Date: 20071102
  Transmission Date: 20080405
  Serious: Yes (Hospitalization, Other)
  Sender: FDA-Public Use
  Company Number: US-MERCK-0708USA01474

PATIENT
  Age: 55 Year
  Sex: Female
  Weight: 73 kg

DRUGS (6)
  1. FOSAMAX [Suspect]
     Indication: OSTEOPOROSIS PROPHYLAXIS
     Route: 048
     Dates: end: 19961008
  2. ZOMETA [Suspect]
     Indication: OSTEOPOROSIS PROPHYLAXIS
     Route: 042
     Dates: start: 19960101, end: 20051101
  3. TAMOXIFEN CITRATE [Concomitant]
     Route: 048
     Dates: start: 19950101
  4. AREDIA [Suspect]
     Route: 042
     Dates: start: 19961101
  5. IMITREX [Concomitant]
     Route: 065
  6. ELAVIL [Concomitant]
     Route: 065
     Dates: start: 19970212

REACTIONS (7)
  - ANXIETY [None]
  - APPENDIX DISORDER [None]
  - CHEST WALL MASS [None]
  - DEPRESSION [None]
  - MIGRAINE [None]
  - OSTEONECROSIS [None]
  - PAIN IN EXTREMITY [None]
